FAERS Safety Report 7473304-6 (Version None)
Quarter: 2011Q2

REPORT INFORMATION
  Report Type: 
  Country: None (occurrence: None)
  Receive Date: 20110511
  Receipt Date: 20110314
  Transmission Date: 20111010
  Serious: Yes (Death, Other)
  Sender: FDA-Public Use
  Company Number: JP-BAYER-2011-006966

PATIENT
  Age: 60 Year
  Sex: Male

DRUGS (3)
  1. NEXAVAR [Suspect]
     Indication: HEPATIC NEOPLASM MALIGNANT
     Dosage: 200 MG, QID
     Route: 048
     Dates: start: 20110111, end: 20110225
  2. CANDESARTAN CILEXETIL [Concomitant]
     Indication: HYPERTENSION
     Route: 048
  3. NEXAVAR [Suspect]
     Dosage: 200 MG, BID
     Dates: start: 20110226

REACTIONS (9)
  - RENAL FAILURE [None]
  - AZOTAEMIA [None]
  - DEHYDRATION [None]
  - DYSPHONIA [None]
  - PALMAR-PLANTAR ERYTHRODYSAESTHESIA SYNDROME [None]
  - HYPERTENSION [None]
  - HYPOGLYCAEMIA [None]
  - METABOLIC ACIDOSIS [None]
  - ASCITES [None]
